FAERS Safety Report 16314812 (Version 4)
Quarter: 2019Q3

REPORT INFORMATION
  Report Type: Spontaneous
  Country: US (occurrence: US)
  Receive Date: 20190515
  Receipt Date: 20190828
  Transmission Date: 20191004
  Serious: Yes (Other)
  Sender: FDA-Public Use
  Company Number: US-AMGEN-USASP2019074010

PATIENT
  Age: 45 Year
  Sex: Female

DRUGS (2)
  1. IMLYGIC [Suspect]
     Active Substance: TALIMOGENE LAHERPAREPVEC
     Indication: MELANOMA RECURRENT
     Dosage: 5 SEPARATE INJECTIONS (1ML, 0.7ML, 0.9ML, 0.7ML, AND 0.9ML) (10^8 PFU/ML)
     Route: 065
     Dates: start: 20190320
  2. PREDNISONE. [Concomitant]
     Active Substance: PREDNISONE
     Dosage: UNK

REACTIONS (1)
  - Cellulitis [Not Recovered/Not Resolved]

NARRATIVE: CASE EVENT DATE: 20190508
